FAERS Safety Report 7322748-1 (Version None)
Quarter: 2011Q1

REPORT INFORMATION
  Report Type: 
  Country: None (occurrence: None)
  Receive Date: 20110216
  Receipt Date: 20110209
  Transmission Date: 20110831
  Serious: Yes (Hospitalization, Other)
  Sender: FDA-Public Use
  Company Number: TAJPN-10-0702

PATIENT
  Age: 76 Year
  Sex: Female
  Weight: 54 kg

DRUGS (2)
  1. ABRAXANE [Suspect]
     Indication: BREAST CANCER
     Dosage: (370 MG)
     Dates: start: 20101104, end: 20101104
  2. ABRAXANE [Suspect]
     Indication: BREAST CANCER
     Dosage: (370 MG)
     Dates: start: 20101216, end: 20101216

REACTIONS (9)
  - PERIPHERAL SENSORY NEUROPATHY [None]
  - ALANINE AMINOTRANSFERASE INCREASED [None]
  - RENAL IMPAIRMENT [None]
  - NEUTROPHIL COUNT DECREASED [None]
  - STOMATITIS [None]
  - HEPATIC FUNCTION ABNORMAL [None]
  - PLATELET COUNT DECREASED [None]
  - WHITE BLOOD CELL COUNT DECREASED [None]
  - ASPARTATE AMINOTRANSFERASE INCREASED [None]
